FAERS Safety Report 8350027-2 (Version None)
Quarter: 2012Q2

REPORT INFORMATION
  Report Type: 
  Country: None (occurrence: None)
  Receive Date: 20120510
  Receipt Date: 20120504
  Transmission Date: 20120825
  Serious: Yes (Death)
  Sender: FDA-Public Use
  Company Number: FR-ACTELION-A-CH2012-65218

PATIENT
  Age: 25 Year
  Sex: Female

DRUGS (1)
  1. TRACLEER [Suspect]
     Indication: DIGITAL ULCER
     Dosage: UNK
     Route: 048

REACTIONS (1)
  - PULMONARY FIBROSIS [None]
